FAERS Safety Report 23858861 (Version 1)
Quarter: 2024Q2

REPORT INFORMATION
  Report Type: Spontaneous
  Country: US (occurrence: None)
  Receive Date: 20240515
  Receipt Date: 20240515
  Transmission Date: 20240715
  Serious: Yes (Death, Hospitalization, Other)
  Sender: FDA-Public Use
  Company Number: 2024A111428

PATIENT
  Age: 82 Year
  Sex: Female
  Weight: 64 kg

DRUGS (23)
  1. FULVESTRANT [Suspect]
     Active Substance: FULVESTRANT
     Indication: Neoplasm malignant
     Dosage: 500.0MG UNKNOWN
     Route: 030
     Dates: start: 20230208, end: 20231005
  2. ABEMACICLIB [Suspect]
     Active Substance: ABEMACICLIB
     Indication: Neoplasm malignant
     Dates: start: 20230208, end: 20231215
  3. TRASTUZUMAB [Suspect]
     Active Substance: TRASTUZUMAB
     Indication: Neoplasm malignant
  4. SOTORASIB [Suspect]
     Active Substance: SOTORASIB
     Indication: Neoplasm malignant
  5. BENZONATATE [Concomitant]
     Active Substance: BENZONATATE
     Dates: start: 2021
  6. DEXTROMETHORPHAN\GUAIFENESIN [Concomitant]
     Active Substance: DEXTROMETHORPHAN\GUAIFENESIN
     Dates: start: 2021
  7. PANTOPRAZOLE [Concomitant]
     Active Substance: PANTOPRAZOLE
     Dates: start: 2022
  8. MAGNESIUM HYDROXIDE [Concomitant]
     Active Substance: MAGNESIUM HYDROXIDE
     Dates: start: 2022
  9. MAGNESIUM HYDROXIDE [Concomitant]
     Active Substance: MAGNESIUM HYDROXIDE
     Dates: start: 2022
  10. HERBALS\SENNOSIDES [Concomitant]
     Active Substance: HERBALS\SENNOSIDES
     Dates: start: 2021
  11. POLYETHYLENE GLYCOL 3350 [Concomitant]
     Active Substance: POLYETHYLENE GLYCOL 3350
     Dates: start: 2021
  12. DOCUSATE SODIUM [Concomitant]
     Active Substance: DOCUSATE SODIUM
     Dates: start: 2021
  13. MELATONIN [Concomitant]
     Active Substance: MELATONIN
     Dates: start: 2018
  14. ALUMINUM HYDROXIDE [Concomitant]
     Active Substance: ALUMINUM HYDROXIDE
     Dates: start: 2022
  15. THIOCTIC ACID [Concomitant]
     Active Substance: THIOCTIC ACID
     Dates: start: 2022
  16. ASCORBIC ACID [Concomitant]
     Active Substance: ASCORBIC ACID
     Dates: start: 2022
  17. VITAMINS [Concomitant]
     Active Substance: VITAMINS
     Dates: start: 2022
  18. ONDANSETRON [Concomitant]
     Active Substance: ONDANSETRON
     Dates: start: 20230209
  19. LOPERAMIDE [Concomitant]
     Active Substance: LOPERAMIDE
     Dates: start: 20230209
  20. MONTELUKAST SODIUM [Concomitant]
     Active Substance: MONTELUKAST SODIUM
     Dates: start: 20230505
  21. SACCHARATED IRON OXIDE [Concomitant]
     Active Substance: IRON SUCROSE
     Dates: start: 20230821
  22. ACETAMINOPHEN [Concomitant]
     Active Substance: ACETAMINOPHEN
     Dates: start: 2021
  23. FUROSEMIDE [Concomitant]
     Active Substance: FUROSEMIDE
     Dates: start: 202212

REACTIONS (5)
  - Death [Fatal]
  - Urinary tract infection [Recovered/Resolved]
  - Malaise [Unknown]
  - Troponin increased [Unknown]
  - Asthenia [Unknown]

NARRATIVE: CASE EVENT DATE: 20231025
